FAERS Safety Report 16141947 (Version 1)
Quarter: 2019Q2

REPORT INFORMATION
  Report Type: Spontaneous
  Country: US (occurrence: US)
  Receive Date: 20190401
  Receipt Date: 20190401
  Transmission Date: 20190711
  Serious: No
  Sender: FDA-Public Use
  Company Number: US-NEUROCRINE BIOSCIENCES INC.-2019NBI00750

PATIENT
  Sex: Male

DRUGS (6)
  1. INGREZZA [Suspect]
     Active Substance: VALBENAZINE
  2. INGREZZA [Suspect]
     Active Substance: VALBENAZINE
  3. HALDOL [Concomitant]
     Active Substance: HALOPERIDOL
  4. EXELON [Concomitant]
     Active Substance: RIVASTIGMINE TARTRATE
  5. INGREZZA [Suspect]
     Active Substance: VALBENAZINE
     Indication: DYSKINESIA
  6. DEPAKOTE [Concomitant]
     Active Substance: DIVALPROEX SODIUM

REACTIONS (5)
  - Fatigue [Unknown]
  - Asthenia [Unknown]
  - Dementia [Unknown]
  - Muscular weakness [Unknown]
  - Therapeutic product effect incomplete [None]
